FAERS Safety Report 18588994 (Version 2)
Quarter: 2021Q1

REPORT INFORMATION
  Report Type: Report from Study
  Country: FR (occurrence: FR)
  Receive Date: 20201208
  Receipt Date: 20210211
  Transmission Date: 20210419
  Serious: Yes (Hospitalization)
  Sender: FDA-Public Use
  Company Number: FR-ROCHE-2724237

PATIENT
  Age: 39 Year
  Sex: Female
  Weight: 51 kg

DRUGS (11)
  1. DAFLON [Concomitant]
     Indication: HAEMORRHOIDS
     Dates: start: 20201107
  2. CARBOPLATIN. [Suspect]
     Active Substance: CARBOPLATIN
     Indication: CERVIX CARCINOMA
     Dosage: AUC 5?ON 06/NOV/2020, HE RECEIVED THE MOST RECENT DOSE OF CARBOPLATIN (485.5 MG) PRIOR TO SAE.
     Route: 042
     Dates: start: 20200831
  3. ATEZOLIZUMAB. [Suspect]
     Active Substance: ATEZOLIZUMAB
     Indication: CERVIX CARCINOMA
     Dosage: ON 06/NOV/2020, HE RECEIVED THE MOST RECENT DOSE OF ATEZOLIZUMAB PRIOR TO SAE.
     Route: 041
     Dates: start: 20200831
  4. PACLITAXEL. [Suspect]
     Active Substance: PACLITAXEL
     Indication: CERVIX CARCINOMA
     Dosage: ON 06/NOV/2020, HE RECEIVED THE MOST RECENT DOSE OF PACLITAXEL (208 MG) PRIOR TO SAE.
     Route: 042
     Dates: start: 20200831
  5. PARACETAMOL [Concomitant]
     Active Substance: ACETAMINOPHEN
     Indication: PYREXIA
  6. SKENAN [Concomitant]
     Active Substance: MORPHINE SULFATE
     Indication: PAIN
     Dates: start: 20201106
  7. TIORFAN [Concomitant]
     Active Substance: RACECADOTRIL
     Indication: DIARRHOEA
     Dates: start: 20200831
  8. PARACETAMOL [Concomitant]
     Active Substance: ACETAMINOPHEN
     Indication: PAIN
     Dates: start: 20201107
  9. LOPERAMID [Concomitant]
     Active Substance: LOPERAMIDE
     Indication: DIARRHOEA
     Dates: start: 20200831
  10. SMECTA [Concomitant]
     Active Substance: MONTMORILLONITE
     Indication: DIARRHOEA
     Dates: start: 20200831
  11. BEVACIZUMAB. [Suspect]
     Active Substance: BEVACIZUMAB
     Indication: CERVIX CARCINOMA
     Dosage: ON 06/NOV/2020, HE RECEIVED THE MOST RECENT DOSE OF BEVACIZUMAB (780 MG) PRIOR TO SAE.
     Route: 042
     Dates: start: 20200831

REACTIONS (2)
  - Cough [Recovered/Resolved with Sequelae]
  - General physical health deterioration [Recovered/Resolved with Sequelae]

NARRATIVE: CASE EVENT DATE: 20201130
